FAERS Safety Report 13394585 (Version 2)
Quarter: 2017Q2

REPORT INFORMATION
  Report Type: Report from Study
  Country: JP (occurrence: JP)
  Receive Date: 20170403
  Receipt Date: 20170426
  Transmission Date: 20170830
  Serious: Yes (Hospitalization)
  Sender: FDA-Public Use
  Company Number: JP-AMGEN-JPNCT2017050109

PATIENT
  Age: 82 Year
  Sex: Male
  Weight: 54 kg

DRUGS (13)
  1. DARBEPOETIN ALFA [Suspect]
     Active Substance: DARBEPOETIN ALFA
     Indication: PRODUCT USED FOR UNKNOWN INDICATION
     Dosage: 30 MUG, Q4WK
     Route: 058
     Dates: start: 20150918, end: 20160502
  2. ROCALTROL [Concomitant]
     Active Substance: CALCITRIOL
     Indication: VITAMIN D DECREASED
     Dosage: 0.25 MUG, QD
     Route: 048
     Dates: start: 20160307
  3. FUROSEMIDE. [Concomitant]
     Active Substance: FUROSEMIDE
     Indication: OEDEMA
     Dosage: 10 MG, QD
     Route: 048
     Dates: start: 20160603
  4. KREMEZIN [Concomitant]
     Active Substance: ACTIVATED CHARCOAL
     Indication: CHRONIC KIDNEY DISEASE
     Dosage: 2 G, TID
     Route: 048
     Dates: start: 20160603, end: 20170326
  5. NU-LOTAN [Concomitant]
     Active Substance: LOSARTAN POTASSIUM
     Indication: HYPERTENSION
     Dosage: 12.5 MG, QD
     Route: 048
     Dates: start: 20080902
  6. FEBURIC [Concomitant]
     Active Substance: FEBUXOSTAT
     Indication: HYPERURICAEMIA
     Dosage: 20 MG, QD
     Route: 048
     Dates: start: 20131016
  7. DARBEPOETIN ALFA [Suspect]
     Active Substance: DARBEPOETIN ALFA
     Dosage: 30 MUG, Q4WK
     Route: 058
     Dates: start: 20160603, end: 20160701
  8. DARBEPOETIN ALFA [Suspect]
     Active Substance: DARBEPOETIN ALFA
     Dosage: 60 MUG, UNK
     Route: 058
     Dates: start: 20161007, end: 20161007
  9. NEXIUM [Concomitant]
     Active Substance: ESOMEPRAZOLE MAGNESIUM
     Indication: GASTROOESOPHAGEAL REFLUX DISEASE
     Dosage: 20 MG, QD
     Route: 048
     Dates: start: 20130219
  10. DARBEPOETIN ALFA [Suspect]
     Active Substance: DARBEPOETIN ALFA
     Dosage: 120 MUG, UNK
     Route: 058
     Dates: start: 20170306, end: 20170306
  11. GASMOTIN [Concomitant]
     Active Substance: MOSAPRIDE CITRATE
     Indication: GASTRITIS
     Dosage: 5 MG, TID
     Route: 048
     Dates: start: 20110708
  12. DARBEPOETIN ALFA [Suspect]
     Active Substance: DARBEPOETIN ALFA
     Dosage: 60 MUG, Q4WK
     Route: 058
     Dates: start: 20160805, end: 20160902
  13. UREA. [Concomitant]
     Active Substance: UREA
     Indication: PRURITUS
     Dosage: UNK, PRN
     Route: 062
     Dates: start: 20170203

REACTIONS (5)
  - Hypoaesthesia oral [Recovering/Resolving]
  - Arteriovenous shunt operation [Not Recovered/Not Resolved]
  - End stage renal disease [Not Recovered/Not Resolved]
  - Vitamin D decreased [Unknown]
  - Pruritus [Unknown]

NARRATIVE: CASE EVENT DATE: 20160307
